FAERS Safety Report 14693314 (Version 6)
Quarter: 2020Q2

REPORT INFORMATION
  Report Type: Spontaneous
  Country: US (occurrence: US)
  Receive Date: 20180329
  Receipt Date: 20200605
  Transmission Date: 20200713
  Serious: Yes (Other)
  Sender: FDA-Public Use
  Company Number: US-ASTRAZENECA-2018SE37130

PATIENT
  Age: 12810 Day
  Sex: Female
  Weight: 87.5 kg

DRUGS (65)
  1. CARDIZEM [Concomitant]
     Active Substance: DILTIAZEM HYDROCHLORIDE
     Route: 065
     Dates: start: 20130509
  2. NEXIUM [Suspect]
     Active Substance: ESOMEPRAZOLE MAGNESIUM
     Indication: GASTROOESOPHAGEAL REFLUX DISEASE
     Route: 048
     Dates: start: 200811, end: 20140310
  3. DEXILANT [Suspect]
     Active Substance: DEXLANSOPRAZOLE
     Indication: GASTROOESOPHAGEAL REFLUX DISEASE
     Route: 048
     Dates: start: 20141204
  4. CEFUROXIME. [Concomitant]
     Active Substance: CEFUROXIME
     Indication: INFECTION
     Dates: start: 201307
  5. CORTISPORIN [Concomitant]
     Active Substance: BACITRACIN ZINC\HYDROCORTISONE\NEOMYCIN SULFATE\POLYMYXIN B SULFATE
  6. ONDANSETRON [Concomitant]
     Active Substance: ONDANSETRON
  7. NITROFURAN [Concomitant]
     Active Substance: NITROFURANTOIN
     Dates: start: 200906, end: 201106
  8. NITROGLYCERIN. [Concomitant]
     Active Substance: NITROGLYCERIN
  9. FLAGYL [Concomitant]
     Active Substance: METRONIDAZOLE\METRONIDAZOLE HYDROCHLORIDE
  10. CATAPRES/ CLONIDINE [Concomitant]
  11. METOCLOPRAMID [Concomitant]
     Active Substance: METOCLOPRAMIDE
     Dates: start: 200906, end: 201106
  12. CLONIDINE. [Concomitant]
     Active Substance: CLONIDINE
  13. NEXIUM [Suspect]
     Active Substance: ESOMEPRAZOLE MAGNESIUM
     Indication: GASTROOESOPHAGEAL REFLUX DISEASE
     Route: 048
     Dates: start: 20140203, end: 20141103
  14. PRILOSEC [Suspect]
     Active Substance: OMEPRAZOLE MAGNESIUM
     Indication: GASTROOESOPHAGEAL REFLUX DISEASE
     Route: 048
     Dates: start: 20160809
  15. PRILOSEC [Suspect]
     Active Substance: OMEPRAZOLE MAGNESIUM
     Indication: GASTROOESOPHAGEAL REFLUX DISEASE
     Route: 048
     Dates: start: 20130513, end: 20141103
  16. PROTONIX [Suspect]
     Active Substance: PANTOPRAZOLE SODIUM
     Indication: GASTROOESOPHAGEAL REFLUX DISEASE
     Route: 065
     Dates: start: 2009, end: 2015
  17. CIPROFLOXACIN. [Concomitant]
     Active Substance: CIPROFLOXACIN
     Indication: INFECTION
     Dates: start: 201204, end: 201809
  18. VITAMIN D2 [Concomitant]
     Active Substance: ERGOCALCIFEROL
     Indication: SUPPLEMENTATION THERAPY
     Dates: start: 201806, end: 201807
  19. FIORICET [Concomitant]
     Active Substance: ACETAMINOPHEN\BUTALBITAL\CAFFEINE
  20. SUMATRIPTAN SUCCINATE/ IMITREX [Concomitant]
  21. CALCIUM ACETATE/ PHOSLO [Concomitant]
  22. DIFLUCAN [Concomitant]
     Active Substance: FLUCONAZOLE
     Dates: start: 200906, end: 201106
  23. PRILOSEC [Suspect]
     Active Substance: OMEPRAZOLE MAGNESIUM
     Indication: GASTROOESOPHAGEAL REFLUX DISEASE
     Dosage: GENERIC
     Route: 048
     Dates: start: 20150221
  24. AZITHROMYCIN ANHYDROUS. [Concomitant]
     Active Substance: AZITHROMYCIN ANHYDROUS
     Indication: INFECTION
     Dates: start: 201309
  25. PROMETHAZINE [Concomitant]
     Active Substance: PROMETHAZINE HYDROCHLORIDE
  26. ACETAMINOPHEN. [Concomitant]
     Active Substance: ACETAMINOPHEN
     Dates: start: 200906, end: 201106
  27. LIDOCAINE. [Concomitant]
     Active Substance: LIDOCAINE
     Dates: start: 200906, end: 201106
  28. RENAGEL [Concomitant]
     Active Substance: SEVELAMER HYDROCHLORIDE
  29. HECTOROL [Concomitant]
     Active Substance: DOXERCALCIFEROL
     Route: 065
  30. HEPARIN [Concomitant]
     Active Substance: HEPARIN SODIUM
     Route: 065
     Dates: start: 20130410
  31. NEXIUM 24HR [Suspect]
     Active Substance: ESOMEPRAZOLE MAGNESIUM
     Route: 048
     Dates: start: 200901, end: 201212
  32. PRILOSEC [Suspect]
     Active Substance: OMEPRAZOLE MAGNESIUM
     Indication: GASTROOESOPHAGEAL REFLUX DISEASE
     Dosage: GENERIC
     Route: 065
     Dates: start: 20130214, end: 20160926
  33. PRILOSEC [Suspect]
     Active Substance: OMEPRAZOLE MAGNESIUM
     Indication: GASTROOESOPHAGEAL REFLUX DISEASE
     Route: 048
     Dates: start: 20150303
  34. PRILOSEC [Suspect]
     Active Substance: OMEPRAZOLE MAGNESIUM
     Indication: GASTROOESOPHAGEAL REFLUX DISEASE
     Route: 048
     Dates: start: 20160518
  35. DEXILANT [Suspect]
     Active Substance: DEXLANSOPRAZOLE
     Indication: GASTROOESOPHAGEAL REFLUX DISEASE
     Route: 065
     Dates: start: 20160318, end: 20160418
  36. TRAMADOL. [Concomitant]
     Active Substance: TRAMADOL
     Indication: BLOOD PRESSURE ABNORMAL
     Dates: start: 201106, end: 201709
  37. DILTIAZEM. [Concomitant]
     Active Substance: DILTIAZEM
  38. SENSIPAR [Concomitant]
     Active Substance: CINACALCET HYDROCHLORIDE
  39. APRESOLINE/ HYDRALAZINE [Concomitant]
     Indication: BLOOD PRESSURE ABNORMAL
     Dates: start: 201108, end: 201710
  40. TOPAMAX [Concomitant]
     Active Substance: TOPIRAMATE
  41. NIFEDIPINE. [Concomitant]
     Active Substance: NIFEDIPINE
  42. IPRATROPIUM [Concomitant]
     Active Substance: IPRATROPIUM
  43. ZEMPLAR [Concomitant]
     Active Substance: PARICALCITOL
     Route: 065
     Dates: start: 20130509
  44. CARAFATE [Concomitant]
     Active Substance: SUCRALFATE
     Route: 065
     Dates: start: 20130509
  45. NEXIUM [Suspect]
     Active Substance: ESOMEPRAZOLE MAGNESIUM
     Indication: GASTROOESOPHAGEAL REFLUX DISEASE
     Route: 048
     Dates: start: 200901, end: 201212
  46. PRILOSEC [Suspect]
     Active Substance: OMEPRAZOLE MAGNESIUM
     Indication: GASTROOESOPHAGEAL REFLUX DISEASE
     Route: 048
     Dates: start: 20130827, end: 20140204
  47. AMOXICILLIN. [Concomitant]
     Active Substance: AMOXICILLIN
     Indication: INFECTION
     Dates: start: 201203, end: 201803
  48. COLACE [Concomitant]
     Active Substance: DOCUSATE SODIUM
  49. COMPAZINE [Concomitant]
     Active Substance: PROCHLORPERAZINE MALEATE
  50. RENVELA [Concomitant]
     Active Substance: SEVELAMER CARBONATE
  51. ROPINIROLE. [Concomitant]
     Active Substance: ROPINIROLE
  52. NITROSTAT [Concomitant]
     Active Substance: NITROGLYCERIN
     Route: 065
     Dates: start: 20130509
  53. METOPROLOL TARTRATE. [Concomitant]
     Active Substance: METOPROLOL TARTRATE
  54. CALCIUM ACETATE. [Concomitant]
     Active Substance: CALCIUM ACETATE
  55. PENICILLIN [Concomitant]
     Active Substance: PENICILLIN
     Indication: INFECTION
     Dates: start: 200810, end: 201503
  56. DEXILANT [Suspect]
     Active Substance: DEXLANSOPRAZOLE
     Indication: GASTROOESOPHAGEAL REFLUX DISEASE
     Route: 065
     Dates: start: 20141101, end: 20150104
  57. PENICILIN [Concomitant]
     Indication: INFECTION
  58. LISINOPRIL. [Concomitant]
     Active Substance: LISINOPRIL
     Indication: BLOOD PRESSURE ABNORMAL
     Dates: start: 200906, end: 201106
  59. LEVOFLOXACIN. [Concomitant]
     Active Substance: LEVOFLOXACIN
     Indication: INFECTION
     Dates: start: 201504, end: 201505
  60. IMODIUM [Concomitant]
     Active Substance: LOPERAMIDE HYDROCHLORIDE
  61. REQUIP [Concomitant]
     Active Substance: ROPINIROLE HYDROCHLORIDE
  62. HYDROXYZINE [Concomitant]
     Active Substance: HYDROXYZINE HYDROCHLORIDE
     Dates: start: 200906, end: 201106
  63. EPOGEN [Concomitant]
     Active Substance: ERYTHROPOIETIN
     Route: 065
     Dates: start: 20150321
  64. VENOFER [Concomitant]
     Active Substance: IRON SUCROSE
     Route: 065
     Dates: start: 20131224
  65. FERRLECIT [Concomitant]
     Active Substance: SODIUM FERRIC GLUCONATE COMPLEX
     Route: 065
     Dates: start: 20130509

REACTIONS (8)
  - Renal failure [Unknown]
  - Hyperparathyroidism secondary [Unknown]
  - Chronic kidney disease-mineral and bone disorder [Unknown]
  - Acute kidney injury [Not Recovered/Not Resolved]
  - End stage renal disease [Not Recovered/Not Resolved]
  - Nephrogenic anaemia [Unknown]
  - Chronic kidney disease [Not Recovered/Not Resolved]
  - Glomerulonephritis membranoproliferative [Unknown]

NARRATIVE: CASE EVENT DATE: 20080930
